FAERS Safety Report 17450197 (Version 1)
Quarter: 2020Q1

REPORT INFORMATION
  Report Type: Spontaneous
  Country: US (occurrence: US)
  Receive Date: 20200208
  Receipt Date: 20200208
  Transmission Date: 20200409
  Serious: No
  Sender: FDA-Public Use
  Company Number: None

PATIENT
  Age: 33 Year
  Sex: Female

DRUGS (1)
  1. AMBRISENTAN 10MG ACTAVIS PHARMA [Suspect]
     Active Substance: AMBRISENTAN
     Indication: PULMONARY ARTERIAL HYPERTENSION
     Dates: start: 201410

REACTIONS (4)
  - Headache [None]
  - Abdominal discomfort [None]
  - Therapy cessation [None]
  - Pain in jaw [None]

NARRATIVE: CASE EVENT DATE: 202001
